FAERS Safety Report 11973811 (Version 1)
Quarter: 2016Q1

REPORT INFORMATION
  Report Type: Report from Study
  Country: US (occurrence: US)
  Receive Date: 20160128
  Receipt Date: 20160128
  Transmission Date: 20160526
  Serious: Yes (Hospitalization)
  Sender: FDA-Public Use
  Company Number: US-ABBVIE-15K-163-1397090-00

PATIENT
  Age: 16 Year
  Sex: Female
  Weight: 39.04 kg

DRUGS (3)
  1. HUMIRA [Suspect]
     Active Substance: ADALIMUMAB
     Route: 065
  2. HUMIRA [Suspect]
     Active Substance: ADALIMUMAB
     Indication: CROHN^S DISEASE
     Route: 065
     Dates: start: 20150506, end: 20150506
  3. HUMIRA [Suspect]
     Active Substance: ADALIMUMAB
     Route: 065
     Dates: start: 20150520, end: 20150520

REACTIONS (3)
  - Pruritus [Unknown]
  - Abscess [Unknown]
  - Abdominal pain [Unknown]

NARRATIVE: CASE EVENT DATE: 201505
